FAERS Safety Report 5381685-2 (Version None)
Quarter: 2007Q2

REPORT INFORMATION
  Report Type: 
  Country: None (occurrence: None)
  Receive Date: 20070629
  Receipt Date: 20061018
  Transmission Date: 20071010
  Serious: Yes (Other)
  Sender: FDA-Public Use
  Company Number: 2006102181

PATIENT
  Age: 50 Year
  Sex: Male
  Weight: 90.7194 kg

DRUGS (5)
  1. ZOLOFT [Suspect]
     Indication: ANXIETY
     Dosage: 150 MG (150 MG, 1 IN 1 D), ORAL
     Route: 048
     Dates: start: 20040424
  2. ZOLOFT [Suspect]
     Indication: DEPRESSION
     Dosage: 150 MG (150 MG, 1 IN 1 D), ORAL
     Route: 048
     Dates: start: 20040424
  3. ZOLOFT [Suspect]
     Indication: OBSESSIVE-COMPULSIVE DISORDER
     Dosage: 150 MG (150 MG, 1 IN 1 D), ORAL
     Route: 048
     Dates: start: 20040424
  4. PROVIGIL [Suspect]
     Indication: NARCOLEPSY
     Dosage: 200 MG
     Dates: start: 20050801
  5. ABILIFY [Suspect]
     Dosage: 10 MG

REACTIONS (8)
  - ANXIETY [None]
  - CONDITION AGGRAVATED [None]
  - COUGH [None]
  - DEPRESSION [None]
  - FEELING ABNORMAL [None]
  - STRESS [None]
  - SUICIDAL BEHAVIOUR [None]
  - TIC [None]
